FAERS Safety Report 7135686-4 (Version None)
Quarter: 2010Q4

REPORT INFORMATION
  Report Type: 
  Country: None (occurrence: None)
  Receive Date: 20101203
  Receipt Date: 20101124
  Transmission Date: 20110411
  Serious: Yes (Hospitalization)
  Sender: FDA-Public Use
  Company Number: JP-ROCHE-745586

PATIENT
  Age: 57 Year
  Sex: Male

DRUGS (2)
  1. PEGASYS [Suspect]
     Indication: HEPATITIS C
     Dosage: DOSAGE IS UNCERTAIN.
     Route: 058
  2. COPEGUS [Suspect]
     Indication: HEPATITIS C
     Dosage: DOSAGE IS UNCERTAIN.
     Route: 048

REACTIONS (1)
  - LIVER TRANSPLANT REJECTION [None]
